FAERS Safety Report 8597706-X (Version None)
Quarter: 2012Q3

REPORT INFORMATION
  Report Type: 
  Country: None (occurrence: None)
  Receive Date: 20120816
  Receipt Date: 20120813
  Transmission Date: 20120928
  Serious: Yes (Death)
  Sender: FDA-Public Use
  Company Number: BR-PFIZER INC-2012198135

PATIENT
  Sex: Male

DRUGS (7)
  1. TICLOPIDINE [Concomitant]
     Dosage: 250 MG, UNK
  2. SIMVASTATIN [Concomitant]
     Dosage: 5 MG, UNK
  3. AMLODIPINE [Concomitant]
     Dosage: 2.5 MG, UNK
  4. LOSARTAN [Concomitant]
     Dosage: 50 MG, UNK
  5. SUTENT [Suspect]
     Indication: RENAL CANCER
     Dosage: 50 MG, 1X/DAY (ONE TABLET DAILY)
     Route: 048
     Dates: start: 20120301
  6. DIAMICRON [Concomitant]
     Dosage: 30 MG, UNK
  7. HYDROCHLOROTHIAZIDE [Concomitant]
     Dosage: 10 MG, UNK

REACTIONS (1)
  - DEATH [None]
